FAERS Safety Report 6371633-0 (Version None)
Quarter: 2009Q3

REPORT INFORMATION
  Report Type: 
  Country: None (occurrence: None)
  Receive Date: 20090923
  Receipt Date: 20080815
  Transmission Date: 20100115
  Serious: No
  Sender: FDA-Public Use
  Company Number: US-ASTRAZENECA-2008UW12768

PATIENT
  Age: 30 Year
  Sex: Female
  Weight: 58.1 kg

DRUGS (2)
  1. SEROQUEL [Suspect]
     Indication: ANXIETY
     Route: 048
     Dates: start: 20071113, end: 20080619
  2. LIBRIUM [Concomitant]
     Route: 048
     Dates: start: 20070930, end: 20071203

REACTIONS (2)
  - AGGRESSION [None]
  - IRRITABILITY [None]
